FAERS Safety Report 7747680-0 (Version None)
Quarter: 2011Q3

REPORT INFORMATION
  Report Type: 
  Country: None (occurrence: None)
  Receive Date: 20110913
  Receipt Date: 20110906
  Transmission Date: 20111222
  Serious: Yes (Hospitalization, Other)
  Sender: FDA-Public Use
  Company Number: GB-BAXTER-2011BH022625

PATIENT
  Age: 13 Month
  Sex: Male
  Weight: 12 kg

DRUGS (9)
  1. GAMMAGARD LIQUID [Suspect]
     Indication: HYPOGAMMAGLOBULINAEMIA
     Route: 042
     Dates: start: 20110627, end: 20110627
  2. GENTAMICIN [Concomitant]
     Indication: SEPSIS
     Route: 042
     Dates: start: 20110618, end: 20110630
  3. CIPROFLOXACIN [Concomitant]
     Indication: PRODUCT USED FOR UNKNOWN INDICATION
     Route: 065
  4. ONDANSETRON [Concomitant]
     Indication: CHEMOTHERAPY
     Route: 042
     Dates: start: 20110520
  5. NEUPOGEN [Concomitant]
     Indication: PRODUCT USED FOR UNKNOWN INDICATION
     Route: 065
  6. SEPTRA [Concomitant]
     Indication: PRODUCT USED FOR UNKNOWN INDICATION
     Route: 065
  7. TEICOPLANIN [Concomitant]
     Indication: SEPSIS
     Route: 042
     Dates: start: 20110611, end: 20110629
  8. CASPOFUNGIN ACETATE [Concomitant]
     Indication: SEPSIS
     Route: 042
     Dates: start: 20110624, end: 20110707
  9. METOCLOPRAMIDE [Concomitant]
     Indication: PRODUCT USED FOR UNKNOWN INDICATION
     Route: 065

REACTIONS (5)
  - TACHYCARDIA [None]
  - POOR PERIPHERAL CIRCULATION [None]
  - PYREXIA [None]
  - CHILLS [None]
  - MALAISE [None]
